FAERS Safety Report 16589523 (Version 1)
Quarter: 2019Q3

REPORT INFORMATION
  Report Type: Spontaneous
  Country: DE (occurrence: DE)
  Receive Date: 20190718
  Receipt Date: 20190718
  Transmission Date: 20191004
  Serious: Yes (Hospitalization)
  Sender: FDA-Public Use
  Company Number: DE-ACCORD-138952

PATIENT
  Age: 70 Year
  Sex: Male
  Weight: 87 kg

DRUGS (14)
  1. GEMCITABINE/GEMCITABINE HYDROCHLORIDE [Suspect]
     Active Substance: GEMCITABINE\GEMCITABINE HYDROCHLORIDE
     Indication: PRODUCT USED FOR UNKNOWN INDICATION
     Dosage: NK NK, ACCORDING TO SCHEME, MOST RECENTLY ON 12.03.2018, SOLUTION FOR INJECTION / INFUSION
     Route: 042
  2. SPIRONOLACTONE. [Concomitant]
     Active Substance: SPIRONOLACTONE
     Dosage: 50 MG, NK, TABLETTEN
     Route: 048
  3. OXALIPLATIN. [Suspect]
     Active Substance: OXALIPLATIN
     Indication: PRODUCT USED FOR UNKNOWN INDICATION
     Dosage: NK NK, ACCORDING TO SCHEME, MOST RECENTLY ON 12.03.2018, SOLUTION FOR INJECTION / INFUSION
     Route: 042
  4. ACETYLSALICYLIC ACID [Concomitant]
     Active Substance: ASPIRIN
     Dosage: 100 MG, 0-1-0-0, TABLETTEN
     Route: 048
  5. TORASEMIDE [Concomitant]
     Active Substance: TORSEMIDE
     Dosage: 10 MG, 1-1-0-0, TABLETTEN
     Route: 048
  6. ZOFRAN [Concomitant]
     Active Substance: ONDANSETRON HYDROCHLORIDE
     Dosage: 8 MG, IF NECESSARY TO 2X DAILY, TABLETS
     Route: 048
  7. PREGABALIN. [Concomitant]
     Active Substance: PREGABALIN
     Dosage: 50 MG, 0-0-1-0, TABLETTEN
     Route: 048
  8. BISOPROLOL [Concomitant]
     Active Substance: BISOPROLOL
     Dosage: 5 MG, 1-0-0-0, TABLETTEN
     Route: 048
  9. ENALAPRIL [Concomitant]
     Active Substance: ENALAPRIL
     Dosage: 10 MG, 1-0-0-0, TABLETTEN
     Route: 048
  10. DEXAMETHASONE. [Concomitant]
     Active Substance: DEXAMETHASONE
     Dosage: 8 MG, 1-0-0-0, TABLETTEN
     Route: 048
  11. SIMVASTATIN. [Concomitant]
     Active Substance: SIMVASTATIN
     Dosage: 40 MG, 0-0-1-0, TABLETTEN
     Route: 048
  12. METAMIZOLE SODIUM [Concomitant]
     Active Substance: METAMIZOLE SODIUM
     Dosage: 30 GGT, BEI BEDARF, TABLETTEN
     Route: 048
  13. ALLOPURINOL. [Concomitant]
     Active Substance: ALLOPURINOL
     Dosage: 300 MG, NK, TABLETTEN
     Route: 048
  14. METFORMIN [Concomitant]
     Active Substance: METFORMIN HYDROCHLORIDE
     Dosage: 1000 MG, 1-0-0-0, TABLETTEN
     Route: 048

REACTIONS (6)
  - Nausea [Unknown]
  - Chest pain [Unknown]
  - Pyrexia [Unknown]
  - Chills [Unknown]
  - Abdominal pain upper [Unknown]
  - Vomiting [Unknown]
